FAERS Safety Report 4887896-4 (Version None)
Quarter: 2006Q1

REPORT INFORMATION
  Report Type: 
  Country: None (occurrence: None)
  Receive Date: 20060123
  Receipt Date: 20041230
  Transmission Date: 20060701
  Serious: Yes (Hospitalization)
  Sender: FDA-Public Use
  Company Number: US-MERCK-0501USA00016

PATIENT
  Age: 59 Year
  Sex: Female
  Weight: 95 kg

DRUGS (2)
  1. VIOXX [Suspect]
     Indication: ARTHRITIS
     Route: 048
     Dates: start: 20010601, end: 20040901
  2. INSULIN [Concomitant]
     Route: 058

REACTIONS (13)
  - ACUTE CORONARY SYNDROME [None]
  - ANXIETY [None]
  - CATARACT [None]
  - CEREBROVASCULAR ACCIDENT [None]
  - CHOLELITHIASIS [None]
  - CORONARY ARTERY DISEASE [None]
  - HEADACHE [None]
  - HYPERTENSION [None]
  - LUMBAR SPINAL STENOSIS [None]
  - OTITIS MEDIA [None]
  - PLEURAL EFFUSION [None]
  - SINUSITIS [None]
  - VENTRICULAR HYPERTROPHY [None]
